FAERS Safety Report 5343551-8 (Version None)
Quarter: 2007Q2

REPORT INFORMATION
  Report Type: 
  Country: None (occurrence: None)
  Receive Date: 20070531
  Receipt Date: 20070524
  Transmission Date: 20071010
  Serious: Yes (Other)
  Sender: FDA-Public Use
  Company Number: 2007SP010172

PATIENT
  Age: 69 Year
  Sex: Male

DRUGS (2)
  1. NASONEX [Suspect]
     Indication: ACUTE SINUSITIS
  2. CETIRIZINE HCL [Concomitant]

REACTIONS (1)
  - TOXIC SKIN ERUPTION [None]
